FAERS Safety Report 4474694-9 (Version None)
Quarter: 2004Q3

REPORT INFORMATION
  Report Type: 
  Country: None (occurrence: None)
  Receive Date: 20040923
  Receipt Date: 20040630
  Transmission Date: 20050211
  Serious: No
  Sender: FDA-Public Use
  Company Number: USA040771615

PATIENT
  Age: 85 Year
  Sex: Female

DRUGS (4)
  1. FORTEO [Suspect]
     Indication: BONE DENSITY DECREASED
     Dates: start: 20030101
  2. PREDNISONE [Concomitant]
  3. VITAMIN B-12 [Concomitant]
  4. ACTONEL [Concomitant]

REACTIONS (2)
  - BONE DENSITY DECREASED [None]
  - INJECTION SITE HAEMORRHAGE [None]
